FAERS Safety Report 4289389-4 (Version None)
Quarter: 2004Q1

REPORT INFORMATION
  Report Type: 
  Country: None (occurrence: None)
  Receive Date: 20040205
  Receipt Date: 20030627
  Transmission Date: 20041129
  Serious: Yes (Hospitalization)
  Sender: FDA-Public Use
  Company Number: A03200301449

PATIENT
  Age: 71 Year
  Sex: Male
  Weight: 74.8435 kg

DRUGS (5)
  1. PLAVIX [Suspect]
     Indication: MYOCARDIAL INFARCTION
     Dosage: 75 MG QD - ORAL
     Route: 048
     Dates: start: 20030525, end: 20030612
  2. PLAVIX [Suspect]
     Indication: PULMONARY THROMBOSIS
     Dosage: 75 MG QD - ORAL
     Route: 048
     Dates: start: 20030525, end: 20030612
  3. ISOSORBIDE [Concomitant]
  4. WARFARIN SODIUM [Concomitant]
  5. LEUPROLIDE ACETATE [Concomitant]

REACTIONS (12)
  - ASTHENIA [None]
  - DRUG ERUPTION [None]
  - ERYTHEMA [None]
  - HAEMOGLOBIN DECREASED [None]
  - LEUKAEMOID REACTION [None]
  - LEUKOCYTOSIS [None]
  - NERVOUSNESS [None]
  - RASH MACULAR [None]
  - RASH PRURITIC [None]
  - RASH SCALY [None]
  - SKIN DESQUAMATION [None]
  - THROMBOCYTHAEMIA [None]
